FAERS Safety Report 11884349 (Version 1)
Quarter: 2016Q1

REPORT INFORMATION
  Report Type: Spontaneous
  Country: IT (occurrence: IT)
  Receive Date: 20160103
  Receipt Date: 20160103
  Transmission Date: 20160526
  Serious: Yes (Hospitalization)
  Sender: FDA-Public Use
  Company Number: IT-TEVA-621230ACC

PATIENT
  Age: 62 Year
  Sex: Female

DRUGS (4)
  1. LEPONEX - NOVARTIS FARMA S.P.A. [Suspect]
     Active Substance: CLOZAPINE
     Indication: PRODUCT USED FOR UNKNOWN INDICATION
     Dosage: 175 MILLIGRAM DAILY;
     Route: 048
     Dates: start: 20131001, end: 20151217
  2. CARBOLITHIUM - TEVA ITALIA S.R.L. [Suspect]
     Active Substance: LITHIUM CARBONATE
     Indication: PRODUCT USED FOR UNKNOWN INDICATION
     Dosage: 750 MILLIGRAM DAILY;
     Route: 048
     Dates: start: 20151001, end: 20151110
  3. EUTIROX [Concomitant]
     Active Substance: LEVOTHYROXINE SODIUM
     Indication: PRODUCT USED FOR UNKNOWN INDICATION
  4. RIVOTRIL [Concomitant]
     Active Substance: CLONAZEPAM
     Indication: PRODUCT USED FOR UNKNOWN INDICATION

REACTIONS (2)
  - Myoclonus [Recovering/Resolving]
  - Dystonia [Recovering/Resolving]

NARRATIVE: CASE EVENT DATE: 20151110
